FAERS Safety Report 5154431-5 (Version None)
Quarter: 2006Q4

REPORT INFORMATION
  Report Type: 
  Country: None (occurrence: None)
  Receive Date: 20061114
  Receipt Date: 20061101
  Transmission Date: 20070319
  Serious: Yes (Other)
  Sender: FDA-Public Use
  Company Number: 2006135613

PATIENT
  Age: 48 Year
  Sex: Female

DRUGS (1)
  1. EPANUTIN SUSPENSION (PHENYTOIN SODIUM) [Suspect]
     Dosage: 300 MG (300 MG, 1 IN 1 D)

REACTIONS (5)
  - CONVULSION [None]
  - DRUG INEFFECTIVE [None]
  - DRUG TOXICITY [None]
  - FALL [None]
  - TINNITUS [None]
